FAERS Safety Report 7132360-5 (Version None)
Quarter: 2010Q4

REPORT INFORMATION
  Report Type: 
  Country: None (occurrence: None)
  Receive Date: 20101129
  Receipt Date: 20101129
  Transmission Date: 20110411
  Serious: Yes (Life-Threatening, Hospitalization)
  Sender: FDA-Public Use
  Company Number: None

PATIENT
  Sex: Female
  Weight: 67.1324 kg

DRUGS (1)
  1. ACTOS [Suspect]
     Indication: DIABETES MELLITUS MANAGEMENT
     Dates: start: 20091207, end: 20101101

REACTIONS (2)
  - CARDIAC FAILURE CONGESTIVE [None]
  - TOOTH LOSS [None]
